FAERS Safety Report 13240423 (Version 1)
Quarter: 2017Q1

REPORT INFORMATION
  Report Type: Spontaneous
  Country: US (occurrence: US)
  Receive Date: 20170216
  Receipt Date: 20170216
  Transmission Date: 20170428
  Serious: No
  Sender: FDA-Public Use
  Company Number: US-RELYPSA-RLY2016003432

PATIENT
  Sex: Female

DRUGS (19)
  1. HYDROCHLOROTHIAZIDE. [Concomitant]
     Active Substance: HYDROCHLOROTHIAZIDE
  2. MULTIVITAMIN AND MINERAL [Concomitant]
  3. FOLIC ACID. [Concomitant]
     Active Substance: FOLIC ACID
  4. CITALOPRAM HYDROBROMIDE. [Concomitant]
     Active Substance: CITALOPRAM HYDROBROMIDE
  5. ASPIRIN (E.C.) [Concomitant]
     Active Substance: ASPIRIN
  6. VITAMIN B-1 [Concomitant]
     Active Substance: THIAMINE
  7. SINGULAIR [Concomitant]
     Active Substance: MONTELUKAST SODIUM
  8. LOVASTATIN. [Concomitant]
     Active Substance: LOVASTATIN
  9. ACIDOPHILUS [Concomitant]
     Active Substance: LACTOBACILLUS ACIDOPHILUS
  10. LEVOTHYROXINE SODIUM. [Concomitant]
     Active Substance: LEVOTHYROXINE SODIUM
  11. CRANBERRY                          /01512301/ [Concomitant]
     Active Substance: CRANBERRY
  12. CETIRIZINE HCL [Concomitant]
     Active Substance: CETIRIZINE HYDROCHLORIDE
  13. VITAMIN D                          /00107901/ [Concomitant]
     Active Substance: ERGOCALCIFEROL
  14. PROAIR HFA [Concomitant]
     Active Substance: ALBUTEROL SULFATE
  15. VELTASSA [Suspect]
     Active Substance: PATIROMER
     Indication: HYPERKALAEMIA
     Dosage: 8.4 G, BID
     Route: 048
     Dates: start: 20160611, end: 2016
  16. METOPROLOL TARTRATE. [Concomitant]
     Active Substance: METOPROLOL TARTRATE
  17. LISINOPRIL. [Suspect]
     Active Substance: LISINOPRIL
  18. LANTUS [Concomitant]
     Active Substance: INSULIN GLARGINE
  19. CALCIUM 600 + D [Concomitant]
     Active Substance: CALCIUM\VITAMIN D

REACTIONS (3)
  - Drug interaction [Unknown]
  - Blood pressure decreased [Unknown]
  - Constipation [Not Recovered/Not Resolved]

NARRATIVE: CASE EVENT DATE: 2016
